FAERS Safety Report 15284482 (Version 1)
Quarter: 2018Q3

REPORT INFORMATION
  Report Type: Spontaneous
  Country: BE (occurrence: BE)
  Receive Date: 20180816
  Receipt Date: 20180816
  Transmission Date: 20181010
  Serious: Yes (Other)
  Sender: FDA-Public Use
  Company Number: BE-BIOVITRUM-2018BE0972

PATIENT
  Age: 3 Year
  Sex: Female

DRUGS (1)
  1. ORFADIN [Suspect]
     Active Substance: NITISINONE
     Indication: TYROSINAEMIA

REACTIONS (4)
  - Mental impairment [Recovered/Resolved]
  - Alpha 1 foetoprotein increased [Unknown]
  - Blood alkaline phosphatase increased [Unknown]
  - Liver transplant [Unknown]
